FAERS Safety Report 4683666-0 (Version None)
Quarter: 2005Q2

REPORT INFORMATION
  Report Type: 
  Country: None (occurrence: None)
  Receive Date: 20050602
  Receipt Date: 20050331
  Transmission Date: 20051028
  Serious: No
  Sender: FDA-Public Use
  Company Number: USA041082689

PATIENT
  Age: 51 Year
  Sex: Female
  Weight: 61 kg

DRUGS (4)
  1. CYMBALTA [Suspect]
     Indication: DEPRESSION
     Dosage: 30 MG
     Dates: start: 20050118, end: 20050120
  2. ACETAMINOPHEN AND OXYCODONE HCL [Concomitant]
  3. LAMICTAL [Concomitant]
  4. ZANAFLEX [Concomitant]

REACTIONS (1)
  - AKATHISIA [None]
